FAERS Safety Report 6810303-9 (Version None)
Quarter: 2010Q2

REPORT INFORMATION
  Report Type: 
  Country: None (occurrence: None)
  Receive Date: 20100630
  Receipt Date: 20071213
  Transmission Date: 20101027
  Serious: Yes (Other)
  Sender: FDA-Public Use
  Company Number: PFIZER INC-2007105641

PATIENT
  Sex: Female

DRUGS (2)
  1. BEXTRA [Suspect]
     Indication: PAIN
     Dosage: DAILY
     Route: 048
     Dates: start: 20041004, end: 20050316
  2. BEXTRA [Suspect]
     Indication: OSTEOARTHRITIS

REACTIONS (1)
  - MYOCARDIAL INFARCTION [None]
